FAERS Safety Report 6448789-4 (Version None)
Quarter: 2009Q4

REPORT INFORMATION
  Report Type: 
  Country: None (occurrence: None)
  Receive Date: 20091120
  Receipt Date: 20091109
  Transmission Date: 20100525
  Serious: Yes (Other)
  Sender: FDA-Public Use
  Company Number: PHHY2009BR49060

PATIENT
  Age: 60 Year
  Sex: Female

DRUGS (2)
  1. ACLASTA [Suspect]
     Indication: OSTEOPOROSIS POSTMENOPAUSAL
     Dosage: 5 MG, ONCE/SINGLE
  2. TAMOXIFEN CITRATE [Concomitant]

REACTIONS (8)
  - CONJUNCTIVAL OEDEMA [None]
  - EXOPHTHALMOS [None]
  - EYE PAIN [None]
  - EYE SWELLING [None]
  - EYELID OEDEMA [None]
  - OCULAR HYPERAEMIA [None]
  - ORBITAL OEDEMA [None]
  - PAROPHTHALMIA [None]
